FAERS Safety Report 6969408 (Version 4)
Quarter: 2013Q1

REPORT INFORMATION
  Report Type: Spontaneous
  Country: BR (occurrence: BR)
  Receive Date: 20090415
  Receipt Date: 20130327
  Transmission Date: 20140127
  Serious: Yes (Other)
  Sender: FDA-Public Use
  Company Number: BR-ELI_LILLY_AND_COMPANY-BR200904001966

PATIENT
  Age: 52 Year
  Sex: Male

DRUGS (2)
  1. CIALIS [Suspect]
     Indication: ERECTILE DYSFUNCTION
     Dosage: 25 MG, PRN
     Route: 065
  2. CIALIS [Suspect]
     Dosage: 5 MG, UNKNOWN
     Route: 065

REACTIONS (3)
  - Visual acuity reduced [Recovered/Resolved]
  - Vision blurred [Recovered/Resolved]
  - Overdose [Recovered/Resolved]
